FAERS Safety Report 6656973-X (Version None)
Quarter: 2010Q1

REPORT INFORMATION
  Report Type: 
  Country: None (occurrence: None)
  Receive Date: 20100330
  Receipt Date: 20100318
  Transmission Date: 20100710
  Serious: Yes (Hospitalization)
  Sender: FDA-Public Use
  Company Number: FI-BIOGENIDEC-2010BI009708

PATIENT
  Age: 44 Year
  Sex: Female

DRUGS (5)
  1. AVONEX [Suspect]
     Indication: MULTIPLE SCLEROSIS
     Route: 030
     Dates: start: 19980601, end: 20100315
  2. NEXIUM [Concomitant]
     Route: 048
  3. TRIMOPAN [Concomitant]
     Route: 048
  4. TIZANIDINI HYDROCLORIDUM [Concomitant]
     Route: 048
  5. PREDNISOLON [Concomitant]
     Route: 048

REACTIONS (3)
  - CHRONIC OBSTRUCTIVE PULMONARY DISEASE [None]
  - DERMATOMYOSITIS [None]
  - LUNG DISORDER [None]
